FAERS Safety Report 4335119-7 (Version None)
Quarter: 2004Q1

REPORT INFORMATION
  Report Type: 
  Country: None (occurrence: None)
  Receive Date: 20040329
  Receipt Date: 20040127
  Transmission Date: 20041129
  Serious: No
  Sender: FDA-Public Use
  Company Number: 04P-163-0248775-00

PATIENT
  Sex: Female

DRUGS (19)
  1. HUMIRA [Suspect]
     Indication: RHEUMATOID ARTHRITIS
     Dosage: 40 MG, 1 IN 2 WK, SUBCUTANEOUS
     Route: 058
     Dates: start: 20040122
  2. METOPROLOL SUCCINATE [Concomitant]
  3. TORSEMIDE [Concomitant]
  4. OMEPRAZOLE [Concomitant]
  5. ZOCOR [Concomitant]
  6. ZETIA [Concomitant]
  7. LEXAPRO [Concomitant]
  8. LAMOTRIGINE [Concomitant]
  9. POTASSIUM CHLORIDE [Concomitant]
  10. ALPRAZOLAM [Concomitant]
  11. AMITRIPTYLINE HYDROCHLORIDE [Concomitant]
  12. ZOLPIDEM TARTRATE [Concomitant]
  13. TRAMADOL HCL [Concomitant]
  14. DARVOCET-N 100 [Concomitant]
  15. CYCLOBENZAPRINE HYDROCHLORIDE [Concomitant]
  16. PRASTERONE [Concomitant]
  17. TOCOPHEROL CONCENTRATE CAP [Concomitant]
  18. MULTI-VITAMINS [Concomitant]
  19. OSTEOBIFLEX [Concomitant]

REACTIONS (2)
  - HEADACHE [None]
  - NAUSEA [None]
